FAERS Safety Report 6301528-X (Version None)
Quarter: 2009Q3

REPORT INFORMATION
  Report Type: 
  Country: None (occurrence: None)
  Receive Date: 20090806
  Receipt Date: 20090806
  Transmission Date: 20100115
  Serious: Yes (Other)
  Sender: FDA-Public Use
  Company Number: None

PATIENT
  Age: 56 Year
  Sex: Female
  Weight: 78.0187 kg

DRUGS (2)
  1. LEVAQUIN [Suspect]
     Indication: CYST REMOVAL
     Dosage: ONE TABLET DAILY MOUTH
     Route: 048
     Dates: start: 20090623, end: 20090627
  2. LEVAQUIN [Suspect]
     Indication: TUMOUR EXCISION
     Dosage: ONE TABLET DAILY MOUTH
     Route: 048
     Dates: start: 20090623, end: 20090627

REACTIONS (6)
  - DIZZINESS [None]
  - FATIGUE [None]
  - IMPAIRED WORK ABILITY [None]
  - NAUSEA [None]
  - PRURITUS [None]
  - URTICARIA [None]
